FAERS Safety Report 7292507-7 (Version None)
Quarter: 2011Q1

REPORT INFORMATION
  Report Type: 
  Country: None (occurrence: None)
  Receive Date: 20110204
  Receipt Date: 20110120
  Transmission Date: 20110831
  Serious: Yes (Other)
  Sender: FDA-Public Use
  Company Number: 2010P1003707

PATIENT
  Age: 65 Year
  Sex: Female
  Weight: 77.1115 kg

DRUGS (7)
  1. SYNTHROID [Concomitant]
  2. VITAMIN D [Concomitant]
  3. FISH OIL [Concomitant]
  4. MESTINON [Suspect]
     Indication: OCULAR MYASTHENIA
     Dosage: PO
     Route: 048
     Dates: start: 20110104
  5. ADVIL LIQUI-GELS [Concomitant]
  6. PYRIDOSTIGMINE BROMIDE [Suspect]
     Indication: OCULAR MYASTHENIA
     Dosage: 60 MG, TID, PO
     Route: 048
     Dates: start: 20100908, end: 20110103
  7. BREWERS YEAST [Concomitant]

REACTIONS (7)
  - DIZZINESS [None]
  - DRUG INEFFECTIVE [None]
  - DIARRHOEA [None]
  - MUSCULOSKELETAL STIFFNESS [None]
  - MYASTHENIA GRAVIS [None]
  - CONDITION AGGRAVATED [None]
  - PALPITATIONS [None]
